FAERS Safety Report 20457491 (Version 1)
Quarter: 2022Q1

REPORT INFORMATION
  Report Type: Spontaneous
  Country: UZ (occurrence: UZ)
  Receive Date: 20220210
  Receipt Date: 20220210
  Transmission Date: 20220423
  Serious: Yes (Hospitalization)
  Sender: FDA-Public Use
  Company Number: UZ-JNJFOC-20220202415

PATIENT
  Age: 44 Year
  Sex: Female
  Weight: 59 kg

DRUGS (4)
  1. SIRTURO [Suspect]
     Active Substance: BEDAQUILINE FUMARATE
     Indication: Tuberculosis
     Dosage: 400
     Route: 048
     Dates: start: 20210318
  2. LINEZOLID [Suspect]
     Active Substance: LINEZOLID
     Indication: Tuberculosis
     Dosage: 300
     Route: 048
     Dates: start: 20210318, end: 20211214
  3. CLOFAZIMINE [Suspect]
     Active Substance: CLOFAZIMINE
     Indication: Tuberculosis
     Dosage: 100
     Route: 048
     Dates: start: 20210318
  4. LEVOFLOXACIN [Suspect]
     Active Substance: LEVOFLOXACIN
     Indication: Tuberculosis
     Dosage: 750
     Route: 048
     Dates: start: 20210318

REACTIONS (4)
  - Thoracotomy [Recovering/Resolving]
  - Lung lobectomy [Recovering/Resolving]
  - Anaemia [Recovering/Resolving]
  - Dizziness [Recovering/Resolving]

NARRATIVE: CASE EVENT DATE: 20211124
